APPROVED DRUG PRODUCT: OXYMORPHONE HYDROCHLORIDE
Active Ingredient: OXYMORPHONE HYDROCHLORIDE
Strength: 5MG
Dosage Form/Route: TABLET, EXTENDED RELEASE;ORAL
Application: A203506 | Product #001
Applicant: SUN PHARMACEUTICAL INDUSTRIES LTD
Approved: Apr 24, 2015 | RLD: No | RS: No | Type: DISCN